FAERS Safety Report 19888932 (Version 1)
Quarter: 2021Q3

REPORT INFORMATION
  Report Type: Spontaneous
  Country: US (occurrence: US)
  Receive Date: 20210928
  Receipt Date: 20210928
  Transmission Date: 20211014
  Serious: Yes (Other)
  Sender: FDA-Public Use
  Company Number: None

PATIENT
  Age: 61 Year
  Sex: Male
  Weight: 76.5 kg

DRUGS (11)
  1. PAROXETINE. [Concomitant]
     Active Substance: PAROXETINE
  2. TAMSULOSIN [Concomitant]
     Active Substance: TAMSULOSIN
  3. ALBUTEROL INHALER [Concomitant]
     Active Substance: ALBUTEROL
  4. FOLIC ACID. [Concomitant]
     Active Substance: FOLIC ACID
  5. LEVOTHYROXINE. [Concomitant]
     Active Substance: LEVOTHYROXINE
  6. REGEN?COV [Suspect]
     Active Substance: CASIRIVIMAB\IMDEVIMAB
     Indication: COVID-19
     Dates: start: 20210910, end: 20210910
  7. LISINOPRIL. [Concomitant]
     Active Substance: LISINOPRIL
  8. IRON [Concomitant]
     Active Substance: IRON
  9. ALPRAZOLAM. [Concomitant]
     Active Substance: ALPRAZOLAM
  10. LIOTHYRONINE [Concomitant]
     Active Substance: LIOTHYRONINE
  11. MIRALAX [Concomitant]
     Active Substance: POLYETHYLENE GLYCOL 3350

REACTIONS (4)
  - Diabetes mellitus [None]
  - Hypotension [None]
  - Hypertension [None]
  - Feeling abnormal [None]

NARRATIVE: CASE EVENT DATE: 20210923
